FAERS Safety Report 19325761 (Version 1)
Quarter: 2021Q2

REPORT INFORMATION
  Report Type: Spontaneous
  Country: US (occurrence: US)
  Receive Date: 20210528
  Receipt Date: 20210528
  Transmission Date: 20210717
  Serious: Yes (Hospitalization)
  Sender: FDA-Public Use
  Company Number: US-KINDEVA DRUG DELIVERY L.P.-2112084

PATIENT
  Sex: Male
  Weight: 122.27 kg

DRUGS (33)
  1. QWS [Suspect]
     Active Substance: UNSPECIFIED INGREDIENT
  2. NAPROXEN. [Suspect]
     Active Substance: NAPROXEN
  3. OXYCODONE. [Suspect]
     Active Substance: OXYCODONE HYDROCHLORIDE
  4. ROPINIROLE. [Suspect]
     Active Substance: ROPINIROLE
  5. SULFACETAMIDE SODIUM. [Suspect]
     Active Substance: SULFACETAMIDE SODIUM
  6. TOPIRAMATE. [Suspect]
     Active Substance: TOPIRAMATE
  7. HOME OXYGEN [Suspect]
     Active Substance: OXYGEN
  8. BACLOFEN. [Suspect]
     Active Substance: BACLOFEN
  9. LANSOPRAZOLE. [Suspect]
     Active Substance: LANSOPRAZOLE
  10. LEVOTHYROXINE. [Suspect]
     Active Substance: LEVOTHYROXINE
  11. METOPROLOL SUCCINATE ER [Suspect]
     Active Substance: METOPROLOL SUCCINATE
  12. NALOXEGOL [Suspect]
     Active Substance: NALOXEGOL
  13. ASPIRIN. [Suspect]
     Active Substance: ASPIRIN
  14. DULOXETINE. [Suspect]
     Active Substance: DULOXETINE
  15. DHEA [Suspect]
     Active Substance: PRASTERONE
  16. MELATONIN [Suspect]
     Active Substance: MELATONIN
  17. SIMVASTATIN. [Suspect]
     Active Substance: SIMVASTATIN
  18. VITAMIN C [Suspect]
     Active Substance: ASCORBIC ACID
  19. TOPICAL CORTICOSTEROIDS [Suspect]
     Active Substance: UNSPECIFIED INGREDIENT
  20. MORPHINE [Suspect]
     Active Substance: MORPHINE
  21. KEFLEX [Concomitant]
     Active Substance: CEPHALEXIN
     Dates: start: 20210122, end: 20210201
  22. ALBUTEROL SULFATE. [Suspect]
     Active Substance: ALBUTEROL SULFATE
     Route: 055
  23. GABAPENTIN. [Suspect]
     Active Substance: GABAPENTIN
  24. TRIMIX (ALPROSTADIL\PAPAVERINE\PHENTOLAMINE) [Suspect]
     Active Substance: ALPROSTADIL\PAPAVERINE\PHENTOLAMINE
  25. COSENTYX [Suspect]
     Active Substance: SECUKINUMAB
     Dates: start: 20190731, end: 20210310
  26. AMITRIPTYLINE [Suspect]
     Active Substance: AMITRIPTYLINE
  27. LIOTHYRONINE [Suspect]
     Active Substance: LIOTHYRONINE
  28. MULTIVITAMIN [Suspect]
     Active Substance: VITAMINS
  29. TAMSULOSIN [Suspect]
     Active Substance: TAMSULOSIN
  30. BACTRIM [Concomitant]
     Active Substance: SULFAMETHOXAZOLE\TRIMETHOPRIM
     Dates: start: 20210122, end: 20210201
  31. LIDOCAINE. [Suspect]
     Active Substance: LIDOCAINE
  32. TESTOSTERONE. [Suspect]
     Active Substance: TESTOSTERONE
  33. VANCOMYCIN [Concomitant]
     Active Substance: VANCOMYCIN
     Dates: start: 20210120

REACTIONS (1)
  - Cellulitis [Recovered/Resolved]

NARRATIVE: CASE EVENT DATE: 20200120
